FAERS Safety Report 4773274-5 (Version None)
Quarter: 2005Q3

REPORT INFORMATION
  Report Type: 
  Country: None (occurrence: None)
  Receive Date: 20050920
  Receipt Date: 20050525
  Transmission Date: 20060218
  Serious: Yes (Disabling)
  Sender: FDA-Public Use
  Company Number: US-BOEHRINGER INGELHEIM PHARMACEUTICALS, INC.-2005-BP-08639BP

PATIENT
  Age: 57 Year
  Sex: Male

DRUGS (4)
  1. MIRAPEX [Suspect]
     Indication: DYSTONIA
     Route: 048
     Dates: start: 20020627, end: 20050503
  2. MIRAPEX [Suspect]
     Indication: PARKINSON'S DISEASE
     Route: 048
     Dates: start: 20050504
  3. SINEMET CR [Concomitant]
  4. SINEMET IR [Concomitant]

REACTIONS (9)
  - CONFUSIONAL STATE [None]
  - DYSARTHRIA [None]
  - IMPULSIVE BEHAVIOUR [None]
  - LIBIDO INCREASED [None]
  - MEMORY IMPAIRMENT [None]
  - OBSESSIVE-COMPULSIVE DISORDER [None]
  - PERSONALITY CHANGE [None]
  - SEXUAL DYSFUNCTION [None]
  - THINKING ABNORMAL [None]
